FAERS Safety Report 9193057 (Version 1)
Quarter: 2013Q1

REPORT INFORMATION
  Report Type: Spontaneous
  Country: US (occurrence: None)
  Receive Date: 20130325
  Receipt Date: 20130325
  Transmission Date: 20140127
  Serious: No
  Sender: FDA-Public Use
  Company Number: None

PATIENT
  Sex: 0

DRUGS (1)
  1. METHOTREXATE TABLETS, USP [Suspect]

REACTIONS (4)
  - Hepatic failure [None]
  - Hepatic cirrhosis [None]
  - Gastrointestinal disorder [None]
  - Impaired healing [None]
